FAERS Safety Report 5306795-7 (Version None)
Quarter: 2007Q2

REPORT INFORMATION
  Report Type: 
  Country: None (occurrence: None)
  Receive Date: 20070425
  Receipt Date: 20070416
  Transmission Date: 20071010
  Serious: Yes (Hospitalization)
  Sender: FDA-Public Use
  Company Number: NL-JNJFOC-20070203520

PATIENT
  Sex: Male
  Weight: 80 kg

DRUGS (14)
  1. INFLIXIMAB [Suspect]
     Route: 042
  2. INFLIXIMAB [Suspect]
     Route: 042
  3. INFLIXIMAB [Suspect]
     Route: 042
  4. INFLIXIMAB [Suspect]
     Indication: CROHN'S DISEASE
     Route: 042
  5. DIFLUCAN [Concomitant]
     Indication: ORAL CANDIDIASIS
  6. ACTONEL [Concomitant]
     Indication: OSTEOPOROSIS
  7. FOLIUM [Concomitant]
  8. HUMILINE [Concomitant]
     Indication: DIABETES MELLITUS
     Route: 042
  9. PANTOZOL [Concomitant]
     Indication: GASTROINTESTINAL DISORDER THERAPY
  10. SELOKEEN ZOC [Concomitant]
     Indication: HYPERTENSION
  11. BECLOMETHASON [Concomitant]
     Indication: CROHN'S DISEASE
  12. MTX [Concomitant]
     Indication: CROHN'S DISEASE
     Route: 058
  13. DEXA [Concomitant]
     Indication: CROHN'S DISEASE
     Route: 042
  14. PENTASA [Concomitant]
     Indication: CROHN'S DISEASE

REACTIONS (2)
  - CROHN'S DISEASE [None]
  - LISTERIOSIS [None]
